FAERS Safety Report 9779523 (Version 1)
Quarter: 2013Q4

REPORT INFORMATION
  Report Type: Spontaneous
  Country: US (occurrence: US)
  Receive Date: 20131223
  Receipt Date: 20131223
  Transmission Date: 20140711
  Serious: No
  Sender: FDA-Public Use
  Company Number: US-PFIZER INC-2013364295

PATIENT
  Age: 76 Year
  Sex: Male
  Weight: 90.7 kg

DRUGS (4)
  1. NEURONTIN [Suspect]
     Indication: NEUROPATHY PERIPHERAL
     Dosage: 300 MG, 3X/DAY
     Route: 048
     Dates: start: 2011
  2. NEURONTIN [Suspect]
     Indication: ARTHRALGIA
  3. NEURONTIN [Suspect]
     Indication: PAIN IN EXTREMITY
  4. NEURONTIN [Suspect]
     Indication: NEURALGIA

REACTIONS (5)
  - Off label use [Unknown]
  - Libido decreased [Unknown]
  - Anorgasmia [Unknown]
  - Erectile dysfunction [Unknown]
  - Hypoaesthesia [Unknown]
